FAERS Safety Report 7620674-1 (Version None)
Quarter: 2011Q3

REPORT INFORMATION
  Report Type: 
  Country: None (occurrence: None)
  Receive Date: 20110719
  Receipt Date: 20110715
  Transmission Date: 20111222
  Serious: Yes (Death, Hospitalization)
  Sender: FDA-Public Use
  Company Number: US-GLAXOSMITHKLINE-A0909729A

PATIENT
  Age: 45 Year
  Sex: Male

DRUGS (1)
  1. ROSIGLITAZONE [Suspect]
     Indication: TYPE 2 DIABETES MELLITUS
     Route: 048

REACTIONS (11)
  - JOINT SWELLING [None]
  - DYSPNOEA [None]
  - OEDEMA PERIPHERAL [None]
  - VISUAL IMPAIRMENT [None]
  - DECREASED APPETITE [None]
  - WEIGHT INCREASED [None]
  - FATIGUE [None]
  - VOMITING [None]
  - DEATH [None]
  - CARDIOVASCULAR DISORDER [None]
  - BALANCE DISORDER [None]
